FAERS Safety Report 8834554 (Version 1)
Quarter: 2012Q4

REPORT INFORMATION
  Report Type: 
  Country: IT (occurrence: IT)
  Receive Date: 20121010
  Receipt Date: 20121010
  Transmission Date: 20130627
  Serious: Yes (Other)
  Sender: FDA-Public Use
  Company Number: IT-ELI_LILLY_AND_COMPANY-IT201210001194

PATIENT
  Age: 63 Year
  Sex: Female

DRUGS (5)
  1. GEMZAR [Suspect]
     Indication: MALIGNANT NEOPLASM OF AMPULLA OF VATER
     Dosage: 1320 mg, other
     Route: 042
     Dates: start: 20120903
  2. OXPLATIN [Concomitant]
     Indication: MALIGNANT NEOPLASM OF AMPULLA OF VATER
     Dosage: 132 mg, other
     Route: 042
     Dates: start: 20120903
  3. ONDANSETRON [Concomitant]
     Dosage: 8 mg, unknown
     Route: 042
     Dates: start: 20121001, end: 20121001
  4. SOLDESAM [Concomitant]
     Dosage: 8 mg, unknown
     Route: 042
     Dates: start: 20121001, end: 20121001
  5. TRIMETON [Concomitant]
     Dosage: UNK, unknown
     Route: 065
     Dates: start: 20121001, end: 20121001

REACTIONS (4)
  - Bronchospasm [Recovered/Resolved]
  - Laryngospasm [Recovered/Resolved]
  - Cough [Recovered/Resolved]
  - Off label use [Unknown]
